FAERS Safety Report 4433278-9 (Version None)
Quarter: 2004Q3

REPORT INFORMATION
  Report Type: 
  Country: None (occurrence: None)
  Receive Date: 20040824
  Receipt Date: 20040813
  Transmission Date: 20050211
  Serious: Yes (Death, Hospitalization)
  Sender: FDA-Public Use
  Company Number: 440003M04USA

PATIENT
  Age: 44 Year
  Sex: Female
  Weight: 52.5 kg

DRUGS (2)
  1. ZORBTIVE [Suspect]
     Indication: SHORT-BOWEL SYNDROME
     Dosage: 5 MG, 1 IN 1 DAYS
     Dates: start: 20040101, end: 20040101
  2. PARENTERAL NUTRITION (SOLUTIONS FOR PARENTERAL) [Concomitant]

REACTIONS (6)
  - BLOOD PRESSURE DECREASED [None]
  - BLOOD TEST ABNORMAL [None]
  - BONE INFECTION [None]
  - PYREXIA [None]
  - SEPSIS [None]
  - SYNCOPE [None]
